FAERS Safety Report 23731657 (Version 3)
Quarter: 2024Q2

REPORT INFORMATION
  Report Type: Report from Study
  Country: CO (occurrence: CO)
  Receive Date: 20240411
  Receipt Date: 20240626
  Transmission Date: 20240716
  Serious: Yes (Other)
  Sender: FDA-Public Use
  Company Number: CO-TAKEDA-2023TUS029725

PATIENT
  Age: 31 Year
  Sex: Male
  Weight: 65 kg

DRUGS (2)
  1. VELAGLUCERASE ALFA [Suspect]
     Active Substance: VELAGLUCERASE ALFA
     Indication: Gaucher^s disease
     Dosage: 3600 INTERNATIONAL UNIT, 2/MONTH
     Route: 042
  2. VELAGLUCERASE ALFA [Suspect]
     Active Substance: VELAGLUCERASE ALFA
     Dosage: 3600 INTERNATIONAL UNIT, Q2WEEKS
     Route: 042

REACTIONS (26)
  - Nephrolithiasis [Unknown]
  - Weight increased [Unknown]
  - Bone fissure [Unknown]
  - Gait disturbance [Unknown]
  - Frustration tolerance decreased [Unknown]
  - Osteoporosis [Unknown]
  - Depressed mood [Unknown]
  - Insurance issue [Unknown]
  - Weight decreased [Unknown]
  - Bone lesion [Unknown]
  - Treatment noncompliance [Unknown]
  - Viral infection [Recovered/Resolved]
  - Cough [Recovered/Resolved]
  - Malaise [Recovered/Resolved]
  - Nasal congestion [Recovered/Resolved]
  - Anxiety [Unknown]
  - Crying [Unknown]
  - Pain in extremity [Unknown]
  - Exostosis [Unknown]
  - Pyrexia [Recovered/Resolved]
  - Arthralgia [Recovered/Resolved]
  - Incorrect dose administered [Unknown]
  - Product prescribing error [Unknown]
  - Product dose omission issue [Unknown]
  - Product prescribing issue [Unknown]
  - Product use issue [Unknown]

NARRATIVE: CASE EVENT DATE: 20230303
